FAERS Safety Report 9250827 (Version 1)
Quarter: 2013Q1

REPORT INFORMATION
  Report Type: Spontaneous
  Country: US (occurrence: None)
  Receive Date: 20130305
  Receipt Date: 20130305
  Transmission Date: 20140127
  Serious: Yes (Hospitalization)
  Sender: FDA-Public Use
  Company Number: 163-21880-12062037 (0)

PATIENT
  Age: 76 Year
  Sex: Male

DRUGS (6)
  1. REVLIMID [Suspect]
     Dates: start: 201007, end: 20120612
  2. BACTRIM [Concomitant]
  3. ACYCLOVIR [Concomitant]
  4. METFORMIN (METFORMIN) [Concomitant]
  5. TOPROL (METOPROLOL SUCCINATE) [Concomitant]
  6. LASIX (FUROSEMIDE) [Concomitant]

REACTIONS (3)
  - Renal failure acute [None]
  - Plasma cell myeloma [None]
  - Hypercalcaemia [None]
